FAERS Safety Report 19205744 (Version 2)
Quarter: 2021Q3

REPORT INFORMATION
  Report Type: Spontaneous
  Country: US (occurrence: US)
  Receive Date: 20210503
  Receipt Date: 20210908
  Transmission Date: 20211014
  Serious: No
  Sender: FDA-Public Use
  Company Number: US-FARMAPROD-202102-0190

PATIENT
  Age: 76 Year
  Sex: Male

DRUGS (16)
  1. AMITRIPTYLINE HYDROCHLORIDE. [Concomitant]
     Active Substance: AMITRIPTYLINE HYDROCHLORIDE
  2. POLYMYXIN B SULFATE. [Concomitant]
     Active Substance: POLYMYXIN B SULFATE
  3. ATENOLOL. [Concomitant]
     Active Substance: ATENOLOL
  4. METHYLPREDNISOLONE. [Concomitant]
     Active Substance: METHYLPREDNISOLONE
  5. METFORMIN HYDROCHLORIDE. [Concomitant]
     Active Substance: METFORMIN HYDROCHLORIDE
  6. TERAZOSIN HYDROCHLORIDE. [Concomitant]
     Active Substance: TERAZOSIN HYDROCHLORIDE
  7. LEVOTHYROXINE. [Concomitant]
     Active Substance: LEVOTHYROXINE
  8. FINASTERIDE. [Concomitant]
     Active Substance: FINASTERIDE
  9. CYCLOBENZAPRINE HYDROCHLORIDE. [Concomitant]
     Active Substance: CYCLOBENZAPRINE HYDROCHLORIDE
  10. SIMVASTATIN. [Concomitant]
     Active Substance: SIMVASTATIN
  11. OXERVATE [Suspect]
     Active Substance: CENEGERMIN-BKBJ
     Indication: PRODUCT USED FOR UNKNOWN INDICATION
     Route: 047
     Dates: start: 20210201
  12. TRAZODONE HYDROCHLORIDE. [Concomitant]
     Active Substance: TRAZODONE HYDROCHLORIDE
  13. OXYCODONE HYDROCHLORIDE. [Concomitant]
     Active Substance: OXYCODONE HYDROCHLORIDE
  14. CLOPIDOGREL [Concomitant]
     Active Substance: CLOPIDOGREL BISULFATE
  15. NAPROXEN. [Concomitant]
     Active Substance: NAPROXEN
  16. FENOFIBRATE. [Concomitant]
     Active Substance: FENOFIBRATE

REACTIONS (7)
  - Ocular discomfort [Unknown]
  - Eye pain [Not Recovered/Not Resolved]
  - Headache [Unknown]
  - Vision blurred [Unknown]
  - Lacrimation increased [Unknown]
  - Visual impairment [Unknown]
  - Swelling of eyelid [Unknown]

NARRATIVE: CASE EVENT DATE: 20210202
